FAERS Safety Report 20340815 (Version 1)
Quarter: 2022Q1

REPORT INFORMATION
  Report Type: Spontaneous
  Country: US (occurrence: US)
  Receive Date: 20220117
  Receipt Date: 20220117
  Transmission Date: 20220424
  Serious: No
  Sender: FDA-Public Use
  Company Number: US-SA-SAC20220113000103

PATIENT
  Age: 47 Year
  Sex: Male

DRUGS (6)
  1. DUPIXENT [Suspect]
     Active Substance: DUPILUMAB
     Indication: Dermatitis atopic
     Dosage: 300 MG, QOW
     Route: 058
     Dates: start: 20210818
  2. FLUOCINONIDE [Concomitant]
     Active Substance: FLUOCINONIDE
     Dosage: 50MG
  3. BENZOYL PEROXIDE [Concomitant]
     Active Substance: BENZOYL PEROXIDE
     Dosage: 50MG
  4. INDOMETHACIN [Concomitant]
     Active Substance: INDOMETHACIN
     Dosage: 75MG
  5. ITRACONAZOLE [Concomitant]
     Active Substance: ITRACONAZOLE
     Dosage: 75MG
  6. TACROLIMUS [Concomitant]
     Active Substance: TACROLIMUS
     Indication: Dermatitis atopic
     Dosage: 75MG

REACTIONS (2)
  - Sleep disorder [Unknown]
  - Dermatitis atopic [Unknown]
